FAERS Safety Report 8122949-9 (Version None)
Quarter: 2012Q1

REPORT INFORMATION
  Report Type: 
  Country: None (occurrence: None)
  Receive Date: 20120208
  Receipt Date: 20120130
  Transmission Date: 20120608
  Serious: Yes (Hospitalization)
  Sender: FDA-Public Use
  Company Number: US-BAYER-2012-009934

PATIENT
  Sex: Female

DRUGS (1)
  1. MIRENA [Suspect]
     Indication: ENDOMETRIOSIS

REACTIONS (5)
  - PROCEDURAL PAIN [None]
  - COMPLICATION OF DEVICE INSERTION [None]
  - UTERINE PERFORATION [None]
  - DEVICE DISLOCATION [None]
  - UTERINE SPASM [None]
